FAERS Safety Report 9267986 (Version 2)
Quarter: 2013Q2

REPORT INFORMATION
  Report Type: Spontaneous
  Country: US (occurrence: US)
  Receive Date: 20130502
  Receipt Date: 20130617
  Transmission Date: 20140414
  Serious: Yes (Other)
  Sender: FDA-Public Use
  Company Number: US-PFIZER INC-2013136280

PATIENT
  Sex: Female

DRUGS (1)
  1. NEURONTIN [Suspect]
     Dosage: UNK
     Dates: start: 2009

REACTIONS (5)
  - Mobility decreased [Unknown]
  - Bradyphrenia [Unknown]
  - Insomnia [Unknown]
  - Somnolence [Unknown]
  - Drug intolerance [Unknown]
